FAERS Safety Report 19733006 (Version 1)
Quarter: 2021Q3

REPORT INFORMATION
  Report Type: Spontaneous
  Country: US (occurrence: US)
  Receive Date: 20210822
  Receipt Date: 20210822
  Transmission Date: 20211014
  Serious: No
  Sender: FDA-Public Use
  Company Number: None

PATIENT
  Age: 65 Year
  Sex: Female
  Weight: 54 kg

DRUGS (2)
  1. CENTRUM SILVER FOR WOMEN 55+ [Concomitant]
  2. XIIDRA [Suspect]
     Active Substance: LIFITEGRAST

REACTIONS (2)
  - Eye irritation [None]
  - Vision blurred [None]
